FAERS Safety Report 9771725 (Version 2)
Quarter: 2014Q1

REPORT INFORMATION
  Report Type: Spontaneous
  Country: US (occurrence: US)
  Receive Date: 20131219
  Receipt Date: 20140305
  Transmission Date: 20141002
  Serious: No
  Sender: FDA-Public Use
  Company Number: US-009507513-1312USA006051

PATIENT
  Age: 19 Year
  Sex: Female
  Weight: 45.35 kg

DRUGS (4)
  1. NEXPLANON [Suspect]
     Indication: CONTRACEPTION
     Dosage: 1 IMPLANT, UNK
     Route: 059
     Dates: start: 20131211, end: 20131211
  2. NEXPLANON [Suspect]
     Dosage: 1 IMPLANT, UNK
     Route: 059
     Dates: start: 20131211
  3. XANAX [Concomitant]
     Dosage: UNK
  4. CELEXA [Concomitant]
     Dosage: UNK

REACTIONS (2)
  - Device difficult to use [Recovered/Resolved]
  - Product quality issue [Unknown]
